FAERS Safety Report 12267744 (Version 2)
Quarter: 2016Q3

REPORT INFORMATION
  Report Type: Report from Study
  Country: DE (occurrence: DE)
  Receive Date: 20160414
  Receipt Date: 20160923
  Transmission Date: 20161109
  Serious: Yes (Hospitalization)
  Sender: FDA-Public Use
  Company Number: DE-BIOGEN-2016BI00216920

PATIENT
  Age: 55 Year
  Sex: Female

DRUGS (1)
  1. TECFIDERA [Suspect]
     Active Substance: DIMETHYL FUMARATE
     Indication: MULTIPLE SCLEROSIS
     Route: 048
     Dates: start: 201403

REACTIONS (5)
  - Pain in extremity [Recovered/Resolved]
  - Fall [Recovered/Resolved]
  - Ligament rupture [Recovered/Resolved with Sequelae]
  - Cystitis [Not Recovered/Not Resolved]
  - Limb injury [Recovered/Resolved with Sequelae]

NARRATIVE: CASE EVENT DATE: 20160308
